FAERS Safety Report 4746507-9 (Version None)
Quarter: 2005Q3

REPORT INFORMATION
  Report Type: 
  Country: None (occurrence: None)
  Receive Date: 20050816
  Receipt Date: 20050816
  Transmission Date: 20060218
  Serious: Yes (Death)
  Sender: FDA-Public Use
  Company Number: None

PATIENT
  Sex: Male
  Weight: 117.9352 kg

DRUGS (5)
  1. DURAGESIC-100 [Suspect]
     Indication: PAIN MANAGEMENT
     Dosage: ONE 100 MCG PATCH EVERY 72 HOURS
  2. DURAGESIC-100 [Suspect]
     Indication: ROTATOR CUFF REPAIR
     Dosage: ONE 100 MCG PATCH EVERY 72 HOURS
  3. GLUCOPHAGE [Concomitant]
  4. VICODIN [Concomitant]
  5. XANAX [Concomitant]

REACTIONS (7)
  - ABNORMAL BEHAVIOUR [None]
  - EYE DISORDER [None]
  - HEPATOMEGALY [None]
  - MALAISE [None]
  - OVERDOSE [None]
  - SOMNOLENCE [None]
  - SUDDEN DEATH [None]
